FAERS Safety Report 24406168 (Version 1)
Quarter: 2024Q4

REPORT INFORMATION
  Report Type: Spontaneous
  Country: US (occurrence: None)
  Receive Date: 20241005
  Receipt Date: 20241005
  Transmission Date: 20250114
  Serious: Yes (Other)
  Sender: Public
  Company Number: None

PATIENT
  Age: 57 Year
  Sex: Female
  Weight: 56.25 kg

DRUGS (5)
  1. METHYLPHENIDATE HYDROCHLORIDE [Suspect]
     Active Substance: METHYLPHENIDATE HYDROCHLORIDE
     Dosage: OTHER QUANTITY : 1 TABLET(S);?
     Route: 048
  2. SYNTHROID [Concomitant]
     Active Substance: LEVOTHYROXINE SODIUM
  3. D [Concomitant]
  4. MULTI [Concomitant]
  5. magnesium AG1 [Concomitant]

REACTIONS (6)
  - Flank pain [None]
  - Malaise [None]
  - Nausea [None]
  - Urinary tract infection [None]
  - Back pain [None]
  - Abdominal distension [None]

NARRATIVE: CASE EVENT DATE: 20241004
